FAERS Safety Report 19919564 (Version 2)
Quarter: 2022Q2

REPORT INFORMATION
  Report Type: Spontaneous
  Country: US (occurrence: US)
  Receive Date: 20211005
  Receipt Date: 20220630
  Transmission Date: 20220721
  Serious: No
  Sender: FDA-Public Use
  Company Number: US-LUPIN PHARMACEUTICALS INC.-2021-18537

PATIENT
  Sex: Female

DRUGS (1)
  1. ALBUTEROL SULFATE [Suspect]
     Active Substance: ALBUTEROL SULFATE
     Indication: Asthma
     Dosage: UNK UNK, PRN (2 PUFFS EVERY 4 TO 6 HOURS AS NEEDED)
     Dates: start: 202108

REACTIONS (4)
  - Device ineffective [Unknown]
  - Device delivery system issue [Unknown]
  - Product substitution issue [Unknown]
  - Dyspnoea [Unknown]
